FAERS Safety Report 4415527-6 (Version None)
Quarter: 2004Q3

REPORT INFORMATION
  Report Type: 
  Country: None (occurrence: None)
  Receive Date: 20040730
  Receipt Date: 20040715
  Transmission Date: 20050211
  Serious: Yes (Life-Threatening)
  Sender: FDA-Public Use
  Company Number: J200402834

PATIENT
  Age: 81 Year
  Sex: Male

DRUGS (6)
  1. (MYSLEE) ZOLPIDEM TABLET 5MG [Suspect]
     Indication: ANXIETY
     Dosage: 5 MG PO
     Route: 048
     Dates: start: 20040615, end: 20040615
  2. (MYSLEE) ZOLPIDEM TABLET 5MG [Suspect]
     Indication: INSOMNIA
     Dosage: 5 MG PO
     Route: 048
     Dates: start: 20040615, end: 20040615
  3. SULPERAZON (SULBACTAM CEFOPERAZONE) [Concomitant]
  4. CLARITHROMYCIN [Concomitant]
  5. MUCOSOLVAN (AMBROXOL HYDROCHLORIDE) [Concomitant]
  6. BISOLVON (BROMHEXINE HYDROCHLORIDE) [Concomitant]

REACTIONS (3)
  - COMA [None]
  - HYPERCAPNIA [None]
  - RESPIRATORY FAILURE [None]
